FAERS Safety Report 16520844 (Version 3)
Quarter: 2020Q3

REPORT INFORMATION
  Report Type: Report from Study
  Country: GB (occurrence: GB)
  Receive Date: 20190702
  Receipt Date: 20200914
  Transmission Date: 20201102
  Serious: Yes (Hospitalization)
  Sender: FDA-Public Use
  Company Number: GB-MYLANLABS-2019M1061731

PATIENT
  Age: 33 Year
  Sex: Female

DRUGS (38)
  1. TRASTUZUMAB EMTANSINE [Suspect]
     Active Substance: ADO-TRASTUZUMAB EMTANSINE
     Indication: HER2 POSITIVE BREAST CANCER
     Dosage: 280 MILLIGRAM (INFUSION, SOLUTION)
     Route: 042
     Dates: start: 20180131
  2. ENOXAPARIN [Concomitant]
     Active Substance: ENOXAPARIN
     Dosage: UNK, QD
     Route: 058
     Dates: start: 20180214, end: 20180218
  3. MEROPENEM. [Concomitant]
     Active Substance: MEROPENEM
     Dosage: 1 GRAM
     Route: 042
     Dates: start: 20160809, end: 20160817
  4. LEVETIRACETAM. [Concomitant]
     Active Substance: LEVETIRACETAM
     Dosage: 1 GRAM
     Route: 042
     Dates: start: 20170616, end: 20170616
  5. TRASTUZUMAB. [Suspect]
     Active Substance: TRASTUZUMAB
     Dosage: 420 MILLIGRAM, Q3W
     Route: 042
     Dates: start: 20170224, end: 20170407
  6. CHLORPHENAMINE [Concomitant]
     Active Substance: CHLORPHENIRAMINE MALEATE
     Dosage: 10 MILLIGRAM
     Route: 042
     Dates: start: 20160928, end: 20170724
  7. ENOXAPARIN [Concomitant]
     Active Substance: ENOXAPARIN
     Dosage: 1200 MILLIGRAM, QD
     Route: 058
     Dates: start: 20180212, end: 20180212
  8. ENOXAPARIN [Concomitant]
     Active Substance: ENOXAPARIN
     Dosage: 40 MILLIGRAM, QD
     Route: 058
     Dates: start: 20170616, end: 20170623
  9. METOCLOPRAMIDE. [Concomitant]
     Active Substance: METOCLOPRAMIDE
     Dosage: 10 MILLIGRAM
     Route: 048
     Dates: start: 20160610, end: 20161111
  10. CODINE LINCTUS [Concomitant]
     Dosage: 10 MILLILITER
     Route: 048
     Dates: start: 20170619, end: 20170619
  11. SALINE                             /00075401/ [Concomitant]
     Active Substance: SODIUM CHLORIDE
     Dosage: 5 MILLILITER, MONTHLY
     Route: 055
     Dates: start: 20170616, end: 20170623
  12. AMOXICILLIN. [Concomitant]
     Active Substance: AMOXICILLIN
     Dosage: UNK
     Route: 048
     Dates: start: 201712, end: 201712
  13. ORAMORPH [Concomitant]
     Active Substance: MORPHINE SULFATE
     Dosage: UNK
     Route: 048
     Dates: start: 20160828
  14. TRASTUZUMAB. [Suspect]
     Active Substance: TRASTUZUMAB
     Dosage: 451.5 MILLIGRAM, Q3W
     Route: 042
     Dates: start: 20161021, end: 20161111
  15. DOCETAXEL. [Suspect]
     Active Substance: DOCETAXEL
     Dosage: UNK, Q3W
     Route: 042
     Dates: start: 20160907, end: 20161021
  16. FILGRASTIM [Concomitant]
     Active Substance: FILGRASTIM
     Dosage: 300 MICROGRAM
     Dates: start: 20160731, end: 20161112
  17. RANITIDINE. [Concomitant]
     Active Substance: RANITIDINE
     Dosage: 50 MILLIGRAM
     Route: 048
     Dates: start: 20170617, end: 20170618
  18. CHLORPHENAMINE [Concomitant]
     Active Substance: CHLORPHENIRAMINE MALEATE
     Dosage: 10 MILLIGRAM
     Route: 042
     Dates: start: 20160907, end: 20160907
  19. SEPTRIN [Concomitant]
     Active Substance: SULFAMETHOXAZOLE\TRIMETHOPRIM
     Dosage: 2112 MILLIGRAM
     Route: 042
     Dates: start: 20160811, end: 20160816
  20. TRASTUZUMAB. [Suspect]
     Active Substance: TRASTUZUMAB
     Indication: HER2 POSITIVE BREAST CANCER
     Dosage: 567 MILLIGRAM, QD (LOADING DOSE)
     Route: 042
     Dates: start: 20160609, end: 20160609
  21. TRASTUZUMAB. [Suspect]
     Active Substance: TRASTUZUMAB
     Dosage: 420 MILLIGRAM, Q3W
     Route: 042
     Dates: start: 20160701, end: 20200727
  22. TRASTUZUMAB. [Suspect]
     Active Substance: TRASTUZUMAB
     Dosage: 472.5 MILLIGRAM, Q3W
     Route: 042
     Dates: start: 20170519, end: 20171228
  23. PERTUZUMAB. [Suspect]
     Active Substance: PERTUZUMAB
     Dosage: 420 MILLIGRAM, Q3W
     Route: 042
     Dates: start: 20160701
  24. DOCETAXEL. [Suspect]
     Active Substance: DOCETAXEL
     Dosage: 108 MILLIGRAM, Q3W
     Route: 042
     Dates: start: 20161111, end: 20161111
  25. COTRIMOXAZOLE [Concomitant]
     Active Substance: SULFAMETHOXAZOLE\TRIMETHOPRIM
     Dosage: 483 MILLIGRAM
     Route: 048
     Dates: start: 20180131, end: 20180131
  26. PERTUZUMAB. [Suspect]
     Active Substance: PERTUZUMAB
     Indication: HER2 POSITIVE BREAST CANCER
     Dosage: 840 MILLIGRAM, QD (LOADING DOSE)
     Route: 042
     Dates: start: 20160609
  27. DOCETAXEL. [Suspect]
     Active Substance: DOCETAXEL
     Indication: HER2 POSITIVE BREAST CANCER
     Dosage: 130 MILLIGRAM, Q3W
     Route: 042
     Dates: start: 20160701
  28. TAMOXIFEN [Suspect]
     Active Substance: TAMOXIFEN
     Indication: HER2 POSITIVE BREAST CANCER
     Dosage: UNK
     Route: 065
     Dates: start: 20170623, end: 20171228
  29. SALBUTAMOL [Concomitant]
     Active Substance: ALBUTEROL
     Dosage: 2.5 MILLIGRAM
     Route: 055
     Dates: start: 20170616, end: 20170618
  30. SALBUTAMOL [Concomitant]
     Active Substance: ALBUTEROL
     Dosage: 2.5 MILLIGRAM
     Dates: start: 20160822, end: 20160908
  31. ADCAL D3 [Concomitant]
     Active Substance: CALCIUM CARBONATE\CHOLECALCIFEROL
     Dosage: UNK (0.5 PER DAY)
     Route: 048
     Dates: start: 20170621
  32. LEVOMEPROMAZINE [Concomitant]
     Active Substance: LEVOMEPROMAZINE
     Dosage: 6.25 MILLIGRAM
     Route: 058
     Dates: start: 20170617, end: 20170617
  33. TRASTUZUMAB. [Suspect]
     Active Substance: TRASTUZUMAB
     Dosage: 420 MILLIGRAM, Q3W
     Route: 042
     Dates: start: 20160907, end: 20160926
  34. TRASTUZUMAB. [Suspect]
     Active Substance: TRASTUZUMAB
     Dosage: 420 MILLIGRAM, Q3W
     Route: 042
     Dates: start: 20161202, end: 20170203
  35. TRASTUZUMAB. [Suspect]
     Active Substance: TRASTUZUMAB
     Dosage: 451.5 MILLIGRAM, Q3W
     Route: 042
     Dates: start: 20161111, end: 20170519
  36. TAMOXIFEN [Suspect]
     Active Substance: TAMOXIFEN
     Dosage: UNK
     Route: 065
     Dates: start: 20180213, end: 20180605
  37. HYDROCORTISONE. [Concomitant]
     Active Substance: HYDROCORTISONE
     Dosage: 10 MILLIGRAM
     Route: 042
     Dates: start: 20160907, end: 20160907
  38. ZOPLICONE [Concomitant]
     Active Substance: ZOPICLONE
     Dosage: 3.75 MILLIGRAM
     Route: 048
     Dates: start: 20170618, end: 20170619

REACTIONS (12)
  - Chest pain [Recovered/Resolved]
  - Excessive eye blinking [Recovered/Resolved]
  - Lower respiratory tract infection [Recovered/Resolved]
  - Nausea [Recovered/Resolved]
  - Dyspnoea [Not Recovered/Not Resolved]
  - Pain in jaw [Recovered/Resolved]
  - Back pain [Recovering/Resolving]
  - Pneumonia [Recovered/Resolved]
  - Seizure [Recovering/Resolving]
  - Vomiting [Not Recovered/Not Resolved]
  - Hyponatraemia [Recovered/Resolved]
  - Diarrhoea [Recovered/Resolved]

NARRATIVE: CASE EVENT DATE: 20160722
